FAERS Safety Report 25584605 (Version 1)
Quarter: 2025Q3

REPORT INFORMATION
  Report Type: Spontaneous
  Country: US (occurrence: US)
  Receive Date: 20250721
  Receipt Date: 20250721
  Transmission Date: 20251020
  Serious: Yes (Other)
  Sender: REGENERON
  Company Number: US-REGENERON PHARMACEUTICALS, INC.-2025-114304

PATIENT
  Sex: Male

DRUGS (2)
  1. PRALUENT [Suspect]
     Active Substance: ALIROCUMAB
     Indication: Arteriosclerosis
     Dosage: 75 MG, Q2W (EVERY 2 WEEKS)
     Route: 065
     Dates: start: 202305, end: 202505
  2. PRALUENT [Suspect]
     Active Substance: ALIROCUMAB
     Dosage: 150 MG, Q2W, (EVERY 14 DAYS)
     Route: 065
     Dates: start: 202505

REACTIONS (9)
  - Cerebrovascular accident [Unknown]
  - Blood cholesterol increased [Unknown]
  - Gait disturbance [Unknown]
  - Muscle atrophy [Unknown]
  - Dizziness [Unknown]
  - Asthenia [Unknown]
  - Muscular weakness [Unknown]
  - Fall [Unknown]
  - Sarcopenia [Unknown]

NARRATIVE: CASE EVENT DATE: 20241201
